FAERS Safety Report 24895000 (Version 1)
Quarter: 2025Q1

REPORT INFORMATION
  Report Type: Other
  Country: GB (occurrence: GB)
  Receive Date: 20250128
  Receipt Date: 20250128
  Transmission Date: 20250408
  Serious: Yes (Other)
  Sender: COREPHARMA LLC
  Company Number: GB-CorePharma LLC-2169924

PATIENT
  Age: 12 Year
  Sex: Male
  Weight: 71.1 kg

DRUGS (2)
  1. DEXAMETHASONE [Suspect]
     Active Substance: DEXAMETHASONE
     Indication: Germ cell cancer metastatic
  2. VINBLASTINE SULFATE [Concomitant]
     Active Substance: VINBLASTINE SULFATE

REACTIONS (3)
  - Germ cell cancer metastatic [Recovered/Resolved]
  - Product use in unapproved indication [Unknown]
  - Rebound effect [Recovered/Resolved]
